FAERS Safety Report 7625709-8 (Version None)
Quarter: 2011Q3

REPORT INFORMATION
  Report Type: 
  Country: None (occurrence: None)
  Receive Date: 20110721
  Receipt Date: 20110718
  Transmission Date: 20111222
  Serious: Yes (Other)
  Sender: FDA-Public Use
  Company Number: IT-BRISTOL-MYERS SQUIBB COMPANY-15913015

PATIENT
  Age: 29 Year
  Sex: Male

DRUGS (3)
  1. NORVIR [Concomitant]
     Indication: HIV INFECTION
     Dosage: NORVIR 100MG
     Dates: start: 20110608, end: 20110706
  2. TRUVADA [Concomitant]
     Indication: HIV INFECTION
     Dosage: TRUVADA 200MG/245MG
     Dates: start: 20090515, end: 20110706
  3. REYATAZ [Suspect]
     Indication: HIV INFECTION
     Dosage: REYATAZ 300 MG ORAL CAPS
     Route: 048
     Dates: start: 20110608, end: 20110704

REACTIONS (3)
  - ABDOMINAL PAIN [None]
  - JAUNDICE [None]
  - ASTHENIA [None]
